FAERS Safety Report 24462725 (Version 2)
Quarter: 2024Q4

REPORT INFORMATION
  Report Type: Report from Study
  Country: MX (occurrence: MX)
  Receive Date: 20241018
  Receipt Date: 20241108
  Transmission Date: 20250114
  Serious: No
  Sender: BIOVITRUM
  Company Number: MX-AstraZeneca-CH-00716835A

PATIENT
  Sex: Female
  Weight: 4.47 kg

DRUGS (11)
  1. PALIVIZUMAB [Suspect]
     Active Substance: PALIVIZUMAB
     Indication: Respiratory syncytial virus infection
     Dosage: MONTHLY?1ST DOSE
     Route: 030
     Dates: end: 20240806
  2. PALIVIZUMAB [Suspect]
     Active Substance: PALIVIZUMAB
     Dosage: MONTHLY?2ND DOSE
     Route: 030
     Dates: start: 20240903, end: 20240903
  3. PALIVIZUMAB [Suspect]
     Active Substance: PALIVIZUMAB
     Dosage: MONTHLY?3RD DOSE
     Route: 030
     Dates: start: 20241003, end: 20241003
  4. TOPIRAMATE [Concomitant]
     Active Substance: TOPIRAMATE
     Indication: Nervous system disorder
     Dosage: 1 MILLIMETRE, Q12H
  5. VIGABATRIN [Concomitant]
     Active Substance: VIGABATRIN
     Indication: Seizure
     Dosage: 2 MILLIMETRE, Q12H
  6. VIGABATRIN [Concomitant]
     Active Substance: VIGABATRIN
     Indication: Epilepsy
  7. SPIRONOLACTONE [Concomitant]
     Active Substance: SPIRONOLACTONE
     Indication: Cardiac disorder
     Dosage: 1 MILLIMETRE, Q12H
  8. LACTOBACILLUS ACIDOPHILUS [Concomitant]
     Active Substance: LACTOBACILLUS ACIDOPHILUS
     Indication: Diarrhoea
     Dosage: 1 DOSAGE FORM, Q8H
  9. PROBIOTICS NOS [Concomitant]
     Active Substance: PROBIOTICS NOS
     Indication: Diarrhoea
     Dosage: 6 DROP, QD
  10. FLUTICASONE [Concomitant]
     Active Substance: FLUTICASONE
     Indication: Inflammation
     Dosage: 2 DOSAGE FORM
  11. OMEPRAZOLE [Concomitant]
     Active Substance: OMEPRAZOLE
     Indication: Gastrooesophageal reflux disease
     Dosage: 1 MILLILITER

REACTIONS (1)
  - No adverse event [Unknown]
